FAERS Safety Report 10311433 (Version 1)
Quarter: 2014Q3

REPORT INFORMATION
  Report Type: Spontaneous
  Country: PL (occurrence: PL)
  Receive Date: 20140717
  Receipt Date: 20140717
  Transmission Date: 20150326
  Serious: Yes (Other)
  Sender: FDA-Public Use
  Company Number: PHHY2014PL085780

PATIENT
  Age: 60 Year
  Sex: Female

DRUGS (7)
  1. MYFORTIC [Suspect]
     Active Substance: MYCOPHENOLATE SODIUM
     Indication: IMMUNOSUPPRESSION
     Dosage: 720 MG, TWICE
  2. KEFZOL [Concomitant]
     Active Substance: CEFAZOLIN SODIUM
     Dosage: 1 G, UNK
  3. SIMULECT [Suspect]
     Active Substance: BASILIXIMAB
     Indication: PROPHYLAXIS AGAINST TRANSPLANT REJECTION
     Dosage: 20 MG, UNK (TWO 20 MG DOSES AT FOUR DAY INTERVAL)
  4. SOLU-MEDROL [Concomitant]
     Active Substance: METHYLPREDNISOLONE SODIUM SUCCINATE
     Indication: IMMUNOSUPPRESSION
     Dosage: UNK UKN, UNK
  5. ENCORTON [Concomitant]
     Active Substance: PREDNISONE
     Indication: IMMUNOSUPPRESSION
     Dosage: 20 MG, DAILY (INTENTION TO WITHDRAW ENCORTON WITHIN THREE MONTHS)
  6. SIMULECT [Suspect]
     Active Substance: BASILIXIMAB
     Dosage: 20 MG, UNK (TWO 20 MG DOSES AT FOUR DAY INTERVAL)
  7. TACROLIMUS. [Suspect]
     Active Substance: TACROLIMUS
     Indication: IMMUNOSUPPRESSION
     Dosage: UNK UKN, UNK

REACTIONS (6)
  - Blood pressure increased [Unknown]
  - Cytomegalovirus infection [Unknown]
  - Urinary tract infection [Unknown]
  - Pain in extremity [Unknown]
  - Renal failure acute [Unknown]
  - Bone marrow oedema [Unknown]

NARRATIVE: CASE EVENT DATE: 201312
